FAERS Safety Report 7893565-9 (Version None)
Quarter: 2011Q4

REPORT INFORMATION
  Report Type: 
  Country: None (occurrence: None)
  Receive Date: 20111104
  Receipt Date: 20111026
  Transmission Date: 20120403
  Serious: Yes (Other)
  Sender: FDA-Public Use
  Company Number: CA-JNJFOC-20111100948

PATIENT
  Sex: Male
  Weight: 64 kg

DRUGS (2)
  1. REMICADE [Suspect]
     Indication: CROHN'S DISEASE
     Dosage: 34TH TREATMENT
     Route: 042
     Dates: start: 20110831, end: 20110831
  2. REMICADE [Suspect]
     Route: 042

REACTIONS (1)
  - HERPES ZOSTER OPHTHALMIC [None]
